FAERS Safety Report 8070836-7 (Version None)
Quarter: 2012Q1

REPORT INFORMATION
  Report Type: 
  Country: None (occurrence: None)
  Receive Date: 20120125
  Receipt Date: 20120120
  Transmission Date: 20120608
  Serious: Yes (Hospitalization)
  Sender: FDA-Public Use
  Company Number: US-GLAXOSMITHKLINE-B0717165A

PATIENT
  Age: 51 Year
  Sex: Male
  Weight: 118.2 kg

DRUGS (2)
  1. AVANDAMET [Suspect]
     Indication: DIABETES MELLITUS
     Route: 048
     Dates: start: 20040611, end: 20060210
  2. AVANDIA [Suspect]
     Indication: DIABETES MELLITUS
     Dosage: 8MG PER DAY
     Route: 048
     Dates: start: 19991223, end: 20080828

REACTIONS (5)
  - CARDIAC ARREST [None]
  - MYOCARDIAL INFARCTION [None]
  - CORONARY ARTERY REOCCLUSION [None]
  - CARDIOGENIC SHOCK [None]
  - CARDIAC FAILURE CONGESTIVE [None]
